FAERS Safety Report 9113879 (Version 1)
Quarter: 2013Q1

REPORT INFORMATION
  Report Type: Report from Study
  Country: US (occurrence: US)
  Receive Date: 20130208
  Receipt Date: 20130208
  Transmission Date: 20140127
  Serious: Yes (Other)
  Sender: FDA-Public Use
  Company Number: US-JNJFOC-20130203615

PATIENT
  Sex: Female
  Weight: 65.77 kg

DRUGS (1)
  1. SIMPONI [Suspect]
     Indication: ANKYLOSING SPONDYLITIS
     Route: 058
     Dates: start: 20100512

REACTIONS (4)
  - Staphylococcal infection [Unknown]
  - Tooth injury [Recovered/Resolved]
  - Tooth infection [Recovered/Resolved]
  - Carbuncle [Recovered/Resolved]
